FAERS Safety Report 24939783 (Version 2)
Quarter: 2025Q1

REPORT INFORMATION
  Report Type: Report from Study
  Country: US (occurrence: US)
  Receive Date: 20250207
  Receipt Date: 20250216
  Transmission Date: 20250409
  Serious: Yes (Other)
  Sender: ABBVIE
  Company Number: US-ABBVIE-6114681

PATIENT
  Age: 51 Year
  Sex: Female
  Weight: 81.646 kg

DRUGS (3)
  1. HUMIRA [Suspect]
     Active Substance: ADALIMUMAB
     Indication: Psoriasis
     Dosage: CITRATE FREE?LAST ADMIN DATE: 2021
     Route: 058
     Dates: start: 20210115
  2. CLOBETASOL [Concomitant]
     Active Substance: CLOBETASOL
     Indication: Skin irritation
  3. TACROLIMUS [Concomitant]
     Active Substance: TACROLIMUS
     Indication: Skin irritation

REACTIONS (7)
  - Tracheal stenosis [Recovered/Resolved]
  - Dysphagia [Recovered/Resolved]
  - Mobility decreased [Recovered/Resolved]
  - Rhinalgia [Recovered/Resolved]
  - Nasal septum deviation [Not Recovered/Not Resolved]
  - Dyspnoea [Recovered/Resolved]
  - Epistaxis [Recovered/Resolved]

NARRATIVE: CASE EVENT DATE: 20210201
